FAERS Safety Report 23383991 (Version 4)
Quarter: 2024Q1

REPORT INFORMATION
  Report Type: Report from Study
  Country: US (occurrence: US)
  Receive Date: 20240109
  Receipt Date: 20240306
  Transmission Date: 20240410
  Serious: Yes (Hospitalization)
  Sender: FDA-Public Use
  Company Number: US-ABBVIE-5575266

PATIENT
  Sex: Male

DRUGS (2)
  1. RINVOQ [Suspect]
     Active Substance: UPADACITINIB
     Indication: Crohn^s disease
     Route: 048
     Dates: start: 20230823, end: 202312
  2. RINVOQ [Suspect]
     Active Substance: UPADACITINIB
     Indication: Crohn^s disease
     Route: 048
     Dates: start: 202312

REACTIONS (9)
  - Abscess intestinal [Unknown]
  - Onychoclasis [Unknown]
  - Swelling [Unknown]
  - Defaecation urgency [Not Recovered/Not Resolved]
  - Abscess intestinal [Recovered/Resolved]
  - Neuropathy peripheral [Unknown]
  - Abnormal faeces [Unknown]
  - Anal incontinence [Unknown]
  - Abdominal pain [Unknown]

NARRATIVE: CASE EVENT DATE: 20230101
